FAERS Safety Report 8586906-0 (Version None)
Quarter: 2012Q3

REPORT INFORMATION
  Report Type: 
  Country: None (occurrence: None)
  Receive Date: 20120810
  Receipt Date: 20120730
  Transmission Date: 20120928
  Serious: Yes (Other)
  Sender: FDA-Public Use
  Company Number: CHPA2012US010494

PATIENT
  Age: 35 Year
  Sex: Female

DRUGS (3)
  1. EXCEDRIN PM TABLETS [Suspect]
     Indication: PAIN
     Dosage: 2 DF, QHS
     Route: 048
     Dates: start: 20120111, end: 20120112
  2. ADDERALL 5 [Concomitant]
     Indication: ATTENTION DEFICIT/HYPERACTIVITY DISORDER
     Dosage: UNK, UNK
     Route: 048
     Dates: start: 20090101
  3. EXCEDRIN PM TABLETS [Suspect]
     Dosage: UNK, UNK
     Route: 048

REACTIONS (6)
  - SOMNOLENCE [None]
  - TREMOR [None]
  - POOR QUALITY SLEEP [None]
  - FEELING ABNORMAL [None]
  - FATIGUE [None]
  - HALLUCINATION [None]
